FAERS Safety Report 8921092 (Version 1)
Quarter: 2012Q4

REPORT INFORMATION
  Report Type: 
  Country: US (occurrence: US)
  Receive Date: 20121123
  Receipt Date: 20121123
  Transmission Date: 20130627
  Serious: Yes (Other)
  Sender: FDA-Public Use
  Company Number: US-AMGEN-USASP2012074400

PATIENT
  Sex: Male

DRUGS (4)
  1. PROLIA [Suspect]
     Indication: OSTEOPOROSIS
     Dosage: UNK UNK, q6mo
     Dates: start: 201209
  2. PROLIA [Suspect]
     Indication: PROSTATE CANCER
  3. CALCIUM [Concomitant]
  4. VITAMIN D /00107901/ [Concomitant]

REACTIONS (3)
  - Pelvic fracture [Unknown]
  - Back pain [Unknown]
  - Rash [Unknown]
